FAERS Safety Report 4533345-5 (Version None)
Quarter: 2005Q1

REPORT INFORMATION
  Report Type: 
  Country: None (occurrence: None)
  Receive Date: 20041206
  Receipt Date: 20040830
  Transmission Date: 20050727
  Serious: No
  Sender: FDA-Public Use
  Company Number: USA040876807

PATIENT
  Sex: Female

DRUGS (5)
  1. CYMBALTA [Suspect]
     Indication: DEPRESSION
     Dosage: 30 MG/1 DAY
     Dates: start: 20040826
  2. PAXIL (PAROXETINE HYDRCHLORIDE) [Concomitant]
  3. WELLBUTRIN [Concomitant]
  4. TRAZODONE HCL [Concomitant]
  5. TEMAZEPAM [Concomitant]

REACTIONS (3)
  - DIZZINESS [None]
  - DRY MOUTH [None]
  - NAUSEA [None]
